FAERS Safety Report 9322052 (Version 1)
Quarter: 2013Q2

REPORT INFORMATION
  Report Type: Report from Study
  Country: AR (occurrence: AR)
  Receive Date: 20130531
  Receipt Date: 20130531
  Transmission Date: 20140414
  Serious: Yes (Hospitalization, Other)
  Sender: FDA-Public Use
  Company Number: AR-BRISTOL-MYERS SQUIBB COMPANY-16620023

PATIENT
  Age: 78 Year
  Sex: Female

DRUGS (5)
  1. APIXABAN [Suspect]
     Indication: THROMBOSIS PROPHYLAXIS
     Dosage: INTERR 16MAY12
     Route: 048
     Dates: start: 20101123
  2. FUROSEMIDE [Concomitant]
     Route: 048
     Dates: start: 1996
  3. CARVEDILOL [Concomitant]
     Route: 048
     Dates: start: 2010, end: 20120517
  4. DIGOXINA [Concomitant]
     Dosage: STARTED AGAIN 5JUN12
     Route: 048
     Dates: start: 1996, end: 20120517
  5. ESPIRONOLACTONA [Concomitant]
     Route: 048

REACTIONS (3)
  - Pneumonia [Not Recovered/Not Resolved]
  - Cardiac failure [Recovered/Resolved]
  - Anaemia [Recovered/Resolved]
